FAERS Safety Report 16579625 (Version 1)
Quarter: 2019Q3

REPORT INFORMATION
  Report Type: Spontaneous
  Country: SI (occurrence: SI)
  Receive Date: 20190716
  Receipt Date: 20190716
  Transmission Date: 20191004
  Serious: Yes (Hospitalization, Other)
  Sender: FDA-Public Use
  Company Number: SI-JNJFOC-20190712912

PATIENT
  Sex: Male

DRUGS (2)
  1. XARELTO [Suspect]
     Active Substance: RIVAROXABAN
     Indication: PRODUCT USED FOR UNKNOWN INDICATION
     Route: 048
  2. COLCHICINE. [Concomitant]
     Active Substance: COLCHICINE
     Route: 065

REACTIONS (4)
  - Renal impairment [Unknown]
  - Gastrointestinal haemorrhage [Unknown]
  - Haematuria [Unknown]
  - Urinary casts [Unknown]
